FAERS Safety Report 7525624-4 (Version None)
Quarter: 2011Q2

REPORT INFORMATION
  Report Type: 
  Country: None (occurrence: None)
  Receive Date: 20110606
  Receipt Date: 20110524
  Transmission Date: 20111010
  Serious: Yes (Hospitalization)
  Sender: FDA-Public Use
  Company Number: PHHY2011AR46353

PATIENT
  Sex: Female

DRUGS (1)
  1. DIOVAN [Suspect]
     Dosage: 1 DF DAILY (80 MG)

REACTIONS (3)
  - GAIT DISTURBANCE [None]
  - INTESTINAL POLYP [None]
  - MUSCULOSKELETAL DISCOMFORT [None]
